FAERS Safety Report 19741464 (Version 1)
Quarter: 2021Q3

REPORT INFORMATION
  Report Type: Spontaneous
  Country: US (occurrence: US)
  Receive Date: 20210824
  Receipt Date: 20210824
  Transmission Date: 20211014
  Serious: No
  Sender: FDA-Public Use
  Company Number: US-SA-2021SA279142

PATIENT
  Age: 36 Year
  Sex: Male
  Weight: 95.24 kg

DRUGS (1)
  1. CERDELGA [Suspect]
     Active Substance: ELIGLUSTAT
     Dosage: 84 MG, BID
     Route: 048
     Dates: start: 20210702

REACTIONS (1)
  - Arthropod sting [Unknown]

NARRATIVE: CASE EVENT DATE: 20210810
